FAERS Safety Report 8426857-5 (Version None)
Quarter: 2012Q2

REPORT INFORMATION
  Report Type: 
  Country: None (occurrence: None)
  Receive Date: 20120611
  Receipt Date: 20120103
  Transmission Date: 20120825
  Serious: Yes (Hospitalization)
  Sender: FDA-Public Use
  Company Number: US-ROCHE-1027002

PATIENT
  Sex: Female

DRUGS (2)
  1. ROCEPHIN [Suspect]
     Indication: URINARY TRACT INFECTION
  2. ROCEPHIN [Suspect]
     Indication: MENINGITIS BACTERIAL

REACTIONS (4)
  - RENAL ATROPHY [None]
  - CONVULSION [None]
  - HYPERTENSION [None]
  - RENAL FAILURE [None]
